FAERS Safety Report 16520085 (Version 1)
Quarter: 2019Q3

REPORT INFORMATION
  Report Type: Spontaneous
  Country: US (occurrence: US)
  Receive Date: 20190702
  Receipt Date: 20190702
  Transmission Date: 20191004
  Serious: No
  Sender: FDA-Public Use
  Company Number: US-BAYER-2019-118766

PATIENT
  Age: 81 Year
  Sex: Male
  Weight: 84 kg

DRUGS (2)
  1. DICYCLOMINE [DICYCLOVERINE] [Concomitant]
  2. MIRALAX [Suspect]
     Active Substance: POLYETHYLENE GLYCOL 3350
     Indication: GASTROINTESTINAL DISORDER
     Dosage: 1 DF, PRN
     Route: 048
     Dates: start: 2017, end: 201906

REACTIONS (2)
  - Labelled drug-disease interaction medication error [None]
  - Product use issue [Unknown]

NARRATIVE: CASE EVENT DATE: 2017
